FAERS Safety Report 4809831-7 (Version None)
Quarter: 2005Q4

REPORT INFORMATION
  Report Type: 
  Country: None (occurrence: None)
  Receive Date: 20051026
  Receipt Date: 20051014
  Transmission Date: 20060501
  Serious: Yes (Hospitalization)
  Sender: FDA-Public Use
  Company Number: US-JNJFOC-20051003512

PATIENT
  Sex: Female
  Weight: 75.3 kg

DRUGS (10)
  1. REMICADE [Suspect]
     Indication: RHEUMATOID ARTHRITIS
     Route: 042
  2. HYDROCHLOROTHIAZIDE [Concomitant]
     Route: 048
  3. FOSAMAX [Concomitant]
  4. FOLIC ACID [Concomitant]
     Route: 048
  5. COUMADIN [Concomitant]
     Route: 048
  6. COUMADIN [Concomitant]
     Route: 048
  7. ASPIRIN [Concomitant]
     Route: 048
  8. METHOTREXATE [Concomitant]
     Route: 048
  9. MACROBID [Concomitant]
  10. POTASSIUM CHLORIDE [Concomitant]
     Route: 048

REACTIONS (2)
  - ENDOMETRIAL CANCER [None]
  - HYSTERECTOMY [None]
